FAERS Safety Report 22285300 (Version 2)
Quarter: 2023Q2

REPORT INFORMATION
  Report Type: Spontaneous
  Country: US (occurrence: US)
  Receive Date: 20230504
  Receipt Date: 20230531
  Transmission Date: 20230721
  Serious: Yes (Hospitalization)
  Sender: FDA-Public Use
  Company Number: US-PFIZER INC-202300179793

PATIENT
  Age: 76 Year
  Sex: Male
  Weight: 77.11 kg

DRUGS (3)
  1. PAXLOVID [Suspect]
     Active Substance: NIRMATRELVIR\RITONAVIR
     Indication: COVID-19 treatment
     Dosage: UNK
     Dates: start: 20230425
  2. XARELTO [Concomitant]
     Active Substance: RIVAROXABAN
     Dosage: UNK
  3. LEVOTHYROXINE [Concomitant]
     Active Substance: LEVOTHYROXINE
     Dosage: UNK

REACTIONS (7)
  - Constipation [Not Recovered/Not Resolved]
  - Hypoacusis [Not Recovered/Not Resolved]
  - Respiration abnormal [Recovered/Resolved]
  - Peripheral swelling [Not Recovered/Not Resolved]
  - Thirst [Recovered/Resolved]
  - Taste disorder [Recovered/Resolved]
  - Faeces pale [Recovered/Resolved]

NARRATIVE: CASE EVENT DATE: 20230101
